FAERS Safety Report 4614069-2 (Version None)
Quarter: 2005Q1

REPORT INFORMATION
  Report Type: 
  Country: None (occurrence: None)
  Receive Date: 20050316
  Receipt Date: 20050228
  Transmission Date: 20050727
  Serious: Yes (Life-Threatening)
  Sender: FDA-Public Use
  Company Number: 2005AC00368

PATIENT
  Age: 79 Year
  Sex: Female
  Weight: 65 kg

DRUGS (4)
  1. ROPIVACAINE [Suspect]
     Indication: ANAESTHESIA
     Dosage: 0.5 % ONCE PNEU
  2. ROPIVACAINE [Suspect]
     Indication: ANAESTHESIA
     Dosage: 0.5 % ONCE PNEU
  3. ATRACURIUM BESYLATE [Suspect]
     Dosage: 50 MG ONCE PNEU
  4. LIDOCAINE [Concomitant]

REACTIONS (6)
  - ANAESTHETIC COMPLICATION [None]
  - DYSPHASIA [None]
  - DYSPNOEA [None]
  - MEDICATION ERROR [None]
  - OXYGEN SATURATION DECREASED [None]
  - PARALYSIS [None]
